FAERS Safety Report 9349822 (Version 2)
Quarter: 2013Q3

REPORT INFORMATION
  Report Type: Spontaneous
  Country: BR (occurrence: BR)
  Receive Date: 20130614
  Receipt Date: 20130719
  Transmission Date: 20140515
  Serious: Yes (Hospitalization)
  Sender: FDA-Public Use
  Company Number: BR-B.I. PHARMACEUTICALS,INC./RIDGEFIELD-2013-BR-00591BR

PATIENT
  Age: 74 Year
  Sex: Female
  Weight: 49 kg

DRUGS (14)
  1. PRADAXA [Suspect]
     Indication: CEREBROVASCULAR ACCIDENT PROPHYLAXIS
     Dosage: 110 MG
     Route: 048
     Dates: start: 201303, end: 20130509
  2. PANTONAX [Concomitant]
     Indication: ABDOMINAL DISCOMFORT
  3. LOSARTANA [Concomitant]
     Indication: HYPERTENSION
  4. BENERVA [Concomitant]
     Indication: DEPRESSION
  5. CARVEDILOL [Concomitant]
     Indication: CARDIOMEGALY
  6. SIMVASTATINA [Concomitant]
     Indication: BLOOD CHOLESTEROL
  7. MALEATO DE ESCITALOPRAM [Concomitant]
     Indication: DEPRESSION
  8. DIGOXINA [Concomitant]
  9. FUROSEMIDA [Concomitant]
  10. CARVEDILOL [Concomitant]
  11. AMIODARONA [Concomitant]
  12. MONOCORDIL [Concomitant]
  13. OMEPRAZOLE [Concomitant]
  14. SERTRALINA [Concomitant]

REACTIONS (16)
  - Arrhythmia [Unknown]
  - Syncope [Recovered/Resolved]
  - Dyspnoea [Recovered/Resolved]
  - Haematoma [Not Recovered/Not Resolved]
  - Haematoma [Not Recovered/Not Resolved]
  - Haematoma [Not Recovered/Not Resolved]
  - Diarrhoea [Not Recovered/Not Resolved]
  - Dyspepsia [Not Recovered/Not Resolved]
  - Gastrooesophageal reflux disease [Not Recovered/Not Resolved]
  - Feeding disorder [Not Recovered/Not Resolved]
  - Pollakiuria [Not Recovered/Not Resolved]
  - Weight decreased [Not Recovered/Not Resolved]
  - Epistaxis [Recovered/Resolved]
  - Anaemia [Not Recovered/Not Resolved]
  - Vomiting [Unknown]
  - Skin discolouration [Recovered/Resolved]
